FAERS Safety Report 5914448-7 (Version None)
Quarter: 2008Q4

REPORT INFORMATION
  Report Type: 
  Country: None (occurrence: None)
  Receive Date: 20081009
  Receipt Date: 20081001
  Transmission Date: 20090506
  Serious: Yes (Death, Hospitalization)
  Sender: FDA-Public Use
  Company Number: US-GENENTECH-269034

PATIENT
  Sex: Male
  Weight: 71.655 kg

DRUGS (1)
  1. RITUXAN [Suspect]
     Indication: THROMBOCYTOPENIA
     Dosage: UNK
     Route: 042
     Dates: start: 20080701

REACTIONS (2)
  - DEATH [None]
  - PULMONARY FIBROSIS [None]
